FAERS Safety Report 14964722 (Version 3)
Quarter: 2018Q3

REPORT INFORMATION
  Report Type: Spontaneous
  Country: JP (occurrence: JP)
  Receive Date: 20180601
  Receipt Date: 20180813
  Transmission Date: 20181010
  Serious: Yes (Other)
  Sender: FDA-Public Use
  Company Number: JP-JNJFOC-20180539954

PATIENT
  Age: 14 Year
  Sex: Female
  Weight: 50 kg

DRUGS (8)
  1. CINAL [Concomitant]
     Active Substance: ASCORBIC ACID\CALCIUM PANTOTHENATE
     Indication: OSTEOPOROSIS PROPHYLAXIS
     Route: 048
     Dates: start: 200502
  2. REMICADE [Suspect]
     Active Substance: INFLIXIMAB
     Indication: TAKAYASU^S ARTERITIS
     Route: 042
     Dates: start: 20060612
  3. ONEALFA [Concomitant]
     Active Substance: ALFACALCIDOL
     Indication: OSTEOPOROSIS PROPHYLAXIS
     Route: 048
     Dates: start: 200502
  4. BUFFERIN [Concomitant]
     Active Substance: ASPIRIN
     Indication: TAKAYASU^S ARTERITIS
     Route: 048
     Dates: start: 20051228
  5. REMICADE [Suspect]
     Active Substance: INFLIXIMAB
     Indication: TAKAYASU^S ARTERITIS
     Route: 042
     Dates: start: 20070822, end: 20070822
  6. MUCOSTA [Concomitant]
     Active Substance: REBAMIPIDE
     Indication: PROPHYLAXIS AGAINST GASTROINTESTINAL ULCER
     Route: 048
  7. PREDNISOLONE. [Concomitant]
     Active Substance: PREDNISOLONE
     Indication: TAKAYASU^S ARTERITIS
     Route: 048
     Dates: start: 200502
  8. LOXOPROFEN [Concomitant]
     Active Substance: LOXOPROFEN
     Indication: HEADACHE
     Route: 048

REACTIONS (3)
  - Off label use [Unknown]
  - Product use in unapproved indication [Unknown]
  - Infusion related reaction [Recovering/Resolving]

NARRATIVE: CASE EVENT DATE: 20060612
